FAERS Safety Report 6638136 (Version 22)
Quarter: 2014Q1

REPORT INFORMATION
  Report Type: Spontaneous
  Country: US (occurrence: US)
  Receive Date: 20080512
  Receipt Date: 20140122
  Transmission Date: 20141002
  Serious: Yes (Death, Hospitalization, Other)
  Sender: FDA-Public Use
  Company Number: PHEH2008US04339

PATIENT
  Age: 50 Year
  Sex: Female
  Weight: 93.7 kg

DRUGS (38)
  1. AREDIA [Suspect]
     Dosage: 90 MG, QMO
     Route: 042
     Dates: end: 200204
  2. ZOMETA [Suspect]
     Indication: PLASMA CELL MYELOMA
     Route: 065
  3. FOSAMAX [Suspect]
  4. GENASENSE [Concomitant]
  5. THALIDOMIDE [Concomitant]
  6. DECADRON                                /CAN/ [Concomitant]
  7. SYNTHROID [Concomitant]
  8. AUGMENTIN [Concomitant]
  9. CHEMOTHERAPEUTICS NOS [Concomitant]
  10. BLOOD CELLS, PACKED HUMAN [Concomitant]
  11. RADIATION THERAPY [Concomitant]
     Dates: start: 1999
  12. CYCLOSPORINE [Concomitant]
  13. VINCRISTINE [Concomitant]
  14. MELPHALAN [Concomitant]
  15. CYTOXAN [Concomitant]
  16. PREDNISONE [Concomitant]
  17. DOXORUBICIN ^BIGMAR^ [Concomitant]
  18. DEXAMETHASONE [Concomitant]
  19. INTERFERON ALFA [Concomitant]
  20. PROCRIT                            /00909301/ [Concomitant]
  21. ADRIAMYCIN [Concomitant]
  22. TAXOL [Concomitant]
  23. LEVOXYL [Concomitant]
  24. CALCIUM [Concomitant]
  25. FERROUS SULFATE [Concomitant]
  26. VITAMIN B6 [Concomitant]
  27. COUMADIN ^BOOTS^ [Concomitant]
  28. FEMARA [Concomitant]
  29. ALBUTEROL [Concomitant]
  30. FOLIC ACID [Concomitant]
  31. OXYCODONE [Concomitant]
  32. CALTRATE +D [Concomitant]
  33. LASIX [Concomitant]
  34. FAMVIR                                  /UNK/ [Concomitant]
  35. PRILOSEC [Concomitant]
  36. LEVAQUIN [Concomitant]
  37. DIFLUCAN [Concomitant]
  38. DARVOCET-N [Concomitant]

REACTIONS (99)
  - Neoplasm progression [Fatal]
  - Malignant neoplasm progression [Fatal]
  - Transient ischaemic attack [Unknown]
  - Diarrhoea [Unknown]
  - Nausea [Unknown]
  - Vomiting [Unknown]
  - Pyrexia [Unknown]
  - Electrolyte imbalance [Unknown]
  - Wound infection [Recovering/Resolving]
  - Compression fracture [Unknown]
  - Osteonecrosis of jaw [Unknown]
  - Injury [Unknown]
  - Disability [Unknown]
  - Pain [Unknown]
  - Tooth abscess [Unknown]
  - Anxiety [Unknown]
  - Anhedonia [Unknown]
  - Tenderness [Unknown]
  - Tooth disorder [Unknown]
  - Tooth infection [Unknown]
  - Dental caries [Unknown]
  - Swelling [Unknown]
  - Breath odour [Unknown]
  - Exposed bone in jaw [Unknown]
  - Dental plaque [Unknown]
  - Weight decreased [Unknown]
  - Venous thrombosis limb [Unknown]
  - Oedema peripheral [Unknown]
  - Neurodegenerative disorder [Unknown]
  - Plasma cell myeloma recurrent [Unknown]
  - Monoparesis [Unknown]
  - Muscular weakness [Unknown]
  - Atrioventricular block first degree [Unknown]
  - Pancytopenia [Unknown]
  - Conjunctivitis viral [Unknown]
  - Adenomatous polyposis coli [Unknown]
  - Abdominal hernia [Unknown]
  - Pneumonia [Unknown]
  - Lung cancer metastatic [Unknown]
  - Atelectasis [Unknown]
  - Pleural effusion [Unknown]
  - Cardiomegaly [Unknown]
  - Oesophageal ulcer [Unknown]
  - Oesophageal polyp [Unknown]
  - Mallory-Weiss syndrome [Unknown]
  - Thrombocytopenia [Unknown]
  - Coagulopathy [Unknown]
  - Rectal haemorrhage [Unknown]
  - Haematochezia [Unknown]
  - Cholelithiasis [Unknown]
  - Ovarian cyst [Unknown]
  - Pulmonary oedema [Unknown]
  - Pulmonary congestion [Unknown]
  - Decubitus ulcer [Unknown]
  - Osteoporosis [Unknown]
  - Osteopenia [Unknown]
  - Osteolysis [Unknown]
  - Chronic obstructive pulmonary disease [Unknown]
  - Dyspnoea [Unknown]
  - Gastric polyps [Unknown]
  - Duodenal polyp [Unknown]
  - Erosive oesophagitis [Unknown]
  - Cardiac failure congestive [Unknown]
  - Arrhythmia [Unknown]
  - Cerebrovascular accident [Unknown]
  - Convulsion [Unknown]
  - Deafness [Unknown]
  - Macular degeneration [Unknown]
  - Lymphoma [Unknown]
  - Small intestinal obstruction [Unknown]
  - Granuloma [Unknown]
  - Dermatitis [Unknown]
  - Anaemia [Unknown]
  - Haemorrhoids [Unknown]
  - Fungal infection [Unknown]
  - Hypertension [Unknown]
  - Urethral caruncle [Unknown]
  - Anal ulcer [Unknown]
  - Alanine aminotransferase increased [Unknown]
  - Tricuspid valve incompetence [Unknown]
  - Mitral valve incompetence [Unknown]
  - Paraesthesia [Recovering/Resolving]
  - Constipation [Unknown]
  - Urinary tract infection [Unknown]
  - Infected skin ulcer [Unknown]
  - Skin ulcer [Unknown]
  - Osteoarthritis [Unknown]
  - Staphylococcal infection [Unknown]
  - Venous occlusion [Unknown]
  - Renal failure [Unknown]
  - Neuropathy peripheral [Unknown]
  - Plasmacytosis [Unknown]
  - Bone erosion [Unknown]
  - Sinus tachycardia [Unknown]
  - Mitral valve calcification [Unknown]
  - Haemolysis [Unknown]
  - Tooth loss [Unknown]
  - Bone lesion [Unknown]
  - Bone disorder [Unknown]
